FAERS Safety Report 10987248 (Version 1)
Quarter: 2015Q1

REPORT INFORMATION
  Report Type: Spontaneous
  Country: US (occurrence: None)
  Receive Date: 20150309
  Receipt Date: 20150309
  Transmission Date: 20150721
  Serious: Yes (Other)
  Sender: FDA-Public Use
  Company Number: A14-0064L

PATIENT
  Age: 40 Year
  Sex: Male

DRUGS (2)
  1. 7 GRASS, SOG [Suspect]
     Active Substance: ALLERGENIC EXTRACT- 7 GRASS MIX\ALLERGENIC EXTRACT- RAGWEED, AMBROSIA SPP
     Indication: IMMUNE SYSTEM DISORDER
     Dates: start: 20141218
  2. POLLENS - TREES, TREE MIX 11 [Suspect]
     Active Substance: ACER SACCHARUM POLLEN\BETULA NIGRA POLLEN\CARYA OVATA POLLEN\FAGUS GRANDIFOLIA POLLEN\FRAXINUS AMERICANA POLLEN\JUGLANS NIGRA POLLEN\PLATANUS OCCIDENTALIS POLLEN\POPULUS DELTOIDES POLLEN\QUERCUS RUBRA POLLEN\SALIX NIGRA POLLEN\ULMUS AMERICANA POLLEN
     Indication: IMMUNE SYSTEM DISORDER
     Dates: start: 20141218

REACTIONS (2)
  - Urticaria [None]
  - Wheezing [None]

NARRATIVE: CASE EVENT DATE: 20141218
